FAERS Safety Report 25382317 (Version 2)
Quarter: 2025Q3

REPORT INFORMATION
  Report Type: Spontaneous
  Country: US (occurrence: US)
  Receive Date: 20250601
  Receipt Date: 20250904
  Transmission Date: 20251021
  Serious: No
  Sender: SANOFI AVENTIS
  Company Number: US-SA-2025SA155007

PATIENT
  Age: 55 Year
  Sex: Male
  Weight: 79.09 kg

DRUGS (7)
  1. DUPIXENT [Suspect]
     Active Substance: DUPILUMAB
     Indication: Eosinophilic oesophagitis
     Dosage: 300 MG, QW
     Route: 058
     Dates: start: 2025
  2. IPRATROPIUM BROMIDE [Concomitant]
     Active Substance: IPRATROPIUM BROMIDE
  3. MONTELUKAST SODIUM [Concomitant]
     Active Substance: MONTELUKAST SODIUM
  4. TRAZODONE [Concomitant]
     Active Substance: TRAZODONE HYDROCHLORIDE
  5. ALVESCO [Concomitant]
     Active Substance: CICLESONIDE
  6. EPINEPHRINE [Concomitant]
     Active Substance: EPINEPHRINE
  7. SUCRALFATE [Concomitant]
     Active Substance: SUCRALFATE

REACTIONS (5)
  - Pain in jaw [Unknown]
  - Toothache [Unknown]
  - Gingival pain [Unknown]
  - Condition aggravated [Unknown]
  - Mastication disorder [Unknown]

NARRATIVE: CASE EVENT DATE: 20250101
